FAERS Safety Report 5114236-8 (Version None)
Quarter: 2006Q3

REPORT INFORMATION
  Report Type: 
  Country: None (occurrence: None)
  Receive Date: 20060925
  Receipt Date: 20060821
  Transmission Date: 20061208
  Serious: Yes (Death)
  Sender: FDA-Public Use
  Company Number: CA-BOEHRINGER INGELHEIM GMBH, GERMANY-2006-CN-00436CN

PATIENT
  Sex: Female
  Weight: 82.6 kg

DRUGS (13)
  1. TIPRANAVIR + RITONAVIR CO-ADMIN [Suspect]
     Indication: HIV INFECTION
     Dosage: 1000MG TPV/ 200MG RTV
     Route: 048
     Dates: start: 20040706
  2. TENOFOVIR [Concomitant]
     Indication: HIV INFECTION
     Route: 048
     Dates: start: 20040706
  3. LAMIVUDINE [Concomitant]
     Dates: start: 20040706
  4. SEPTRA DS [Concomitant]
     Indication: PNEUMOCYSTIS JIROVECI PNEUMONIA
  5. FLOVENT [Concomitant]
     Indication: ASTHMA
     Route: 055
  6. GLYBURIDE [Concomitant]
     Indication: DIABETES MELLITUS
  7. METFORMIN [Concomitant]
     Indication: DIABETES MELLITUS
  8. RAMIPRIL [Concomitant]
     Indication: DIABETES MELLITUS
  9. ALBUTEROL SPIROS [Concomitant]
     Indication: ASTHMA
     Route: 055
  10. ZOPICLONE [Concomitant]
     Indication: INSOMNIA
  11. FERROUS SULFATE TAB [Concomitant]
     Indication: ANAEMIA
     Dates: start: 20050224
  12. LIPIDIL [Concomitant]
     Indication: BLOOD CHOLESTEROL
     Dates: start: 20050616
  13. SEPTRA [Concomitant]
     Indication: BRONCHITIS CHRONIC
     Dates: start: 20060623

REACTIONS (1)
  - DEATH [None]
